FAERS Safety Report 7097252-9 (Version None)
Quarter: 2010Q4

REPORT INFORMATION
  Report Type: 
  Country: None (occurrence: None)
  Receive Date: 20101111
  Receipt Date: 20101108
  Transmission Date: 20110411
  Serious: Yes (Hospitalization)
  Sender: FDA-Public Use
  Company Number: CHPA2010US15184

PATIENT
  Age: 57 Year
  Sex: Male
  Weight: 72.562 kg

DRUGS (1)
  1. VOLTAREN [Suspect]
     Indication: MYALGIA
     Dosage: 4 G, QD
     Route: 061
     Dates: start: 20100901, end: 20100901

REACTIONS (4)
  - CELLULITIS [None]
  - DRUG ADMINISTERED AT INAPPROPRIATE SITE [None]
  - LACRIMATION INCREASED [None]
  - OFF LABEL USE [None]
